FAERS Safety Report 11458346 (Version 3)
Quarter: 2015Q4

REPORT INFORMATION
  Report Type: Report from Study
  Country: BR (occurrence: BR)
  Receive Date: 20150904
  Receipt Date: 20151122
  Transmission Date: 20160304
  Serious: Yes (Other)
  Sender: FDA-Public Use
  Company Number: PHHY2015BR094081

PATIENT
  Age: 32 Year
  Sex: Female
  Weight: 60 kg

DRUGS (4)
  1. GILENYA [Suspect]
     Active Substance: FINGOLIMOD HYDROCHLORIDE
     Indication: MULTIPLE SCLEROSIS
     Dosage: 0.5 MG, QD (1 CAPSULE IN THE MORNING),
     Route: 048
     Dates: start: 201306, end: 20150621
  2. OMEPRAZOLE. [Concomitant]
     Active Substance: OMEPRAZOLE
     Indication: GASTRITIS PROPHYLAXIS
     Dosage: 1 DF, QD, STARTED MANY YEARS AGO
     Route: 065
  3. CERAZETTE [Concomitant]
     Active Substance: DESOGESTREL
     Indication: CONTRACEPTION
     Dosage: 1 DF, QD, STARTED 6 YEARS AGO
     Route: 048
  4. VENLAFAXINE [Concomitant]
     Active Substance: VENLAFAXINE HYDROCHLORIDE
     Indication: DEPRESSION
     Dosage: 1 DF, QD, STARTED ONE MONTH AGO
     Route: 048

REACTIONS (41)
  - Blindness [Unknown]
  - Pain in extremity [Not Recovered/Not Resolved]
  - Body height decreased [Recovering/Resolving]
  - Drug ineffective [Unknown]
  - Brain injury [Unknown]
  - Memory impairment [Not Recovered/Not Resolved]
  - Sensory loss [Unknown]
  - Syncope [Recovering/Resolving]
  - Hypoaesthesia [Recovering/Resolving]
  - Balance disorder [Recovering/Resolving]
  - Feeling cold [Not Recovered/Not Resolved]
  - Speech disorder [Recovering/Resolving]
  - Malaise [Unknown]
  - Helicobacter infection [Recovered/Resolved]
  - Food intolerance [Recovering/Resolving]
  - Decreased appetite [Unknown]
  - Nausea [Unknown]
  - Diplopia [Unknown]
  - Visual acuity reduced [Recovering/Resolving]
  - Macular oedema [Not Recovered/Not Resolved]
  - Headache [Recovering/Resolving]
  - Helicobacter infection [Recovering/Resolving]
  - Asthenia [Unknown]
  - Intestinal perforation [Not Recovered/Not Resolved]
  - Irritability [Recovering/Resolving]
  - Retching [Recovering/Resolving]
  - Heart rate decreased [Recovering/Resolving]
  - Vomiting [Unknown]
  - Gait disturbance [Recovering/Resolving]
  - Nervousness [Recovering/Resolving]
  - Arthralgia [Not Recovered/Not Resolved]
  - Dysuria [Recovering/Resolving]
  - Weight decreased [Recovering/Resolving]
  - Fall [Unknown]
  - Ear congestion [Unknown]
  - Multiple sclerosis relapse [Recovering/Resolving]
  - Hypermetropia [Recovering/Resolving]
  - Breath odour [Not Recovered/Not Resolved]
  - Stress [Unknown]
  - Bone pain [Not Recovered/Not Resolved]
  - Constipation [Unknown]

NARRATIVE: CASE EVENT DATE: 201405
